FAERS Safety Report 20446862 (Version 1)
Quarter: 2022Q1

REPORT INFORMATION
  Report Type: Report from Study
  Country: US (occurrence: US)
  Receive Date: 20220208
  Receipt Date: 20220208
  Transmission Date: 20220424
  Serious: Yes (Other)
  Sender: FDA-Public Use
  Company Number: US-ABBVIE-22K-163-4264032-00

PATIENT
  Age: 50 Year
  Sex: Male

DRUGS (8)
  1. HUMIRA [Suspect]
     Active Substance: ADALIMUMAB
     Indication: Crohn^s disease
     Route: 058
  2. CITALOPRAM [Concomitant]
     Active Substance: CITALOPRAM HYDROBROMIDE
     Indication: Product used for unknown indication
  3. HYDROBROMIDE DEXTROMETHORPHAN [Concomitant]
     Indication: Product used for unknown indication
  4. VITAMIN B12 [Concomitant]
     Active Substance: CYANOCOBALAMIN
     Indication: Product used for unknown indication
  5. FISH OIL [Concomitant]
     Active Substance: FISH OIL
     Indication: Product used for unknown indication
  6. XARELTO [Concomitant]
     Active Substance: RIVAROXABAN
     Indication: Product used for unknown indication
  7. MIRTAZAPINE [Concomitant]
     Active Substance: MIRTAZAPINE
     Indication: Product used for unknown indication
  8. MESALAMINE [Concomitant]
     Active Substance: MESALAMINE
     Indication: Product used for unknown indication

REACTIONS (17)
  - Cholecystectomy [Unknown]
  - Eye operation [Unknown]
  - Deep vein thrombosis [Unknown]
  - Diarrhoea [Unknown]
  - Anal incontinence [Unknown]
  - Muscle spasms [Unknown]
  - Gastrointestinal pain [Unknown]
  - Haematochezia [Unknown]
  - Pyrexia [Unknown]
  - Weight decreased [Unknown]
  - C-reactive protein increased [Unknown]
  - Craniocerebral injury [Unknown]
  - Depression [Unknown]
  - Pneumonia [Unknown]
  - COVID-19 [Unknown]
  - Vitamin B12 deficiency [Unknown]
  - Vitamin D deficiency [Unknown]

NARRATIVE: CASE EVENT DATE: 20130501
